FAERS Safety Report 6493035-9 (Version None)
Quarter: 2009Q4

REPORT INFORMATION
  Report Type: 
  Country: None (occurrence: None)
  Receive Date: 20091214
  Receipt Date: 20091204
  Transmission Date: 20100525
  Serious: Yes (Other)
  Sender: FDA-Public Use
  Company Number: GXKR2009GB13149

PATIENT
  Age: 9 Year
  Sex: Male

DRUGS (1)
  1. DICLOFENAC (NGX) [Suspect]
     Route: 065

REACTIONS (2)
  - BLADDER CATHETERISATION [None]
  - MEDICAL DEVICE COMPLICATION [None]
